FAERS Safety Report 16361409 (Version 1)
Quarter: 2019Q2

REPORT INFORMATION
  Report Type: Report from Study
  Country: US (occurrence: US)
  Receive Date: 20190528
  Receipt Date: 20190528
  Transmission Date: 20190711
  Serious: Yes (Hospitalization, Other)
  Sender: FDA-Public Use
  Company Number: US-MYLANLABS-2019M1049325

PATIENT
  Age: 40 Year
  Sex: Female

DRUGS (4)
  1. MIDAZOLAM [Suspect]
     Active Substance: MIDAZOLAM HYDROCHLORIDE
     Indication: SEDATIVE THERAPY
     Route: 042
  2. PROPOFOL. [Suspect]
     Active Substance: PROPOFOL
     Indication: SEDATIVE THERAPY
     Route: 042
  3. SALBUTAMOL [Suspect]
     Active Substance: ALBUTEROL
     Indication: ANAESTHETIC COMPLICATION PULMONARY
     Dosage: NEBULISED
     Route: 050
  4. SODIUM CITRATE/CITRIC ACID [Suspect]
     Active Substance: CITRIC ACID MONOHYDRATE\SODIUM CITRATE
     Indication: BLOOD ALKALINISATION THERAPY
     Route: 048

REACTIONS (2)
  - Maternal exposure during pregnancy [Recovering/Resolving]
  - Anaesthetic complication pulmonary [Recovering/Resolving]
